FAERS Safety Report 9170768 (Version 1)
Quarter: 2013Q1

REPORT INFORMATION
  Report Type: Spontaneous
  Country: US (occurrence: US)
  Receive Date: 20130319
  Receipt Date: 20130319
  Transmission Date: 20140127
  Serious: No
  Sender: FDA-Public Use
  Company Number: US-PFIZER INC-2013087757

PATIENT
  Sex: Female

DRUGS (2)
  1. NEURONTIN [Suspect]
     Dosage: UNK
     Route: 048
  2. ZOSTAVAX [Interacting]
     Indication: ANTIVIRAL PROPHYLAXIS
     Dosage: UNK, SINGLE
     Route: 058
     Dates: start: 20130308, end: 20130308

REACTIONS (2)
  - Injection site rash [Recovered/Resolved]
  - Drug interaction [Unknown]
